FAERS Safety Report 8911416 (Version 2)
Quarter: 2012Q4

REPORT INFORMATION
  Report Type: 
  Country: US (occurrence: US)
  Receive Date: 20121115
  Receipt Date: 20121213
  Transmission Date: 20130627
  Serious: Yes (Hospitalization, Other)
  Sender: FDA-Public Use
  Company Number: US-JNJFOC-20121103545

PATIENT
  Age: 66 Year
  Sex: Female
  Weight: 108.86 kg

DRUGS (17)
  1. XARELTO [Suspect]
     Indication: CEREBROVASCULAR ACCIDENT PROPHYLAXIS
     Route: 048
     Dates: start: 20121015, end: 20121020
  2. XARELTO [Suspect]
     Indication: ATRIAL FIBRILLATION
     Route: 048
     Dates: start: 20121015, end: 20121020
  3. PREDNISONE [Suspect]
     Indication: PRODUCT USED FOR UNKNOWN INDICATION
     Dates: start: 20121015
  4. PREDNISONE [Suspect]
     Indication: PRODUCT USED FOR UNKNOWN INDICATION
     Dates: start: 20121101
  5. DILTIAZEM [Concomitant]
     Indication: BLOOD PRESSURE
  6. SYMBICORT [Concomitant]
  7. SPIRIVA [Concomitant]
  8. PROTONIX [Concomitant]
  9. TRIAMTERENE [Concomitant]
  10. CLARINEX [Concomitant]
  11. REGLAN [Concomitant]
  12. METFORMIN [Concomitant]
  13. FISH OIL [Concomitant]
  14. CALCIUM [Concomitant]
  15. PEPCID [Concomitant]
  16. ZOCOR [Concomitant]
  17. SINGULAIR [Concomitant]

REACTIONS (5)
  - White blood cell count increased [Recovered/Resolved]
  - Lower extremity mass [Not Recovered/Not Resolved]
  - Infection [Recovered/Resolved]
  - Contusion [Not Recovered/Not Resolved]
  - Weight increased [Not Recovered/Not Resolved]
